FAERS Safety Report 8321405-2 (Version None)
Quarter: 2012Q2

REPORT INFORMATION
  Report Type: 
  Country: None (occurrence: None)
  Receive Date: 20120430
  Receipt Date: 20120423
  Transmission Date: 20120825
  Serious: Yes (Death, Other)
  Sender: FDA-Public Use
  Company Number: US-ASTELLAS-2012US002730

PATIENT
  Sex: Female
  Weight: 44 kg

DRUGS (1)
  1. PROGRAF [Suspect]
     Indication: HEART TRANSPLANT
     Dosage: 5 MG, UID/QD
     Route: 048
     Dates: start: 20021006, end: 20120303

REACTIONS (4)
  - CARDIAC FAILURE CONGESTIVE [None]
  - DIVERTICULUM OESOPHAGEAL [None]
  - DIALYSIS [None]
  - LUNG DISORDER [None]
